FAERS Safety Report 17198940 (Version 1)
Quarter: 2019Q4

REPORT INFORMATION
  Report Type: Spontaneous
  Country: BR (occurrence: BR)
  Receive Date: 20191225
  Receipt Date: 20191225
  Transmission Date: 20200122
  Serious: Yes (Other)
  Sender: FDA-Public Use
  Company Number: ALCN2016BR002973

PATIENT
  Sex: Female
  Weight: 52 kg

DRUGS (2)
  1. AZOPT [Suspect]
     Active Substance: BRINZOLAMIDE
     Indication: GLAUCOMA
     Dosage: 1 GTT, Q12H (STRENGTH- 1 PERCENT)
     Route: 047
     Dates: start: 2006
  2. AZOPT [Interacting]
     Active Substance: BRINZOLAMIDE
     Dosage: UNK (STRENGTH- 5 ML)
     Route: 047

REACTIONS (7)
  - Malaise [Recovered/Resolved]
  - Dizziness [Recovered/Resolved]
  - Lacrimal passage granuloma [Not Recovered/Not Resolved]
  - Eye irritation [Recovering/Resolving]
  - Oropharyngeal discomfort [Recovered/Resolved]
  - Ocular hyperaemia [Recovering/Resolving]
  - Hypersensitivity [Recovering/Resolving]

NARRATIVE: CASE EVENT DATE: 2010
